FAERS Safety Report 8806197 (Version 1)
Quarter: 2012Q4

REPORT INFORMATION
  Report Type: Spontaneous
  Country: US (occurrence: None)
  Receive Date: 20120917
  Receipt Date: 20120917
  Transmission Date: 20130627
  Serious: Yes (Life-Threatening, Hospitalization)
  Sender: FDA-Public Use
  Company Number: INT_00121_2012

PATIENT
  Age: 74 Year
  Sex: Male

DRUGS (5)
  1. CEFAZOLIN [Suspect]
     Indication: ANTIBIOTIC PROPHYLAXIS
     Dosage: 1 g 1g  (NOT OTHERWISE SPECIFIED)
     Route: 042
     Dates: start: 20120831, end: 20120831
  2. PROPOFOL [Suspect]
     Route: 042
  3. PROPOFOL [Suspect]
     Dosage: /kg per minute (NOT OTHERWISE SPECIFIED)
     Route: 042
  4. MIDAZOLAM [Concomitant]
  5. FENTANYL [Concomitant]

REACTIONS (1)
  - Bronchospasm [None]
